FAERS Safety Report 23021136 (Version 2)
Quarter: 2023Q4

REPORT INFORMATION
  Report Type: Spontaneous
  Country: FR (occurrence: FR)
  Receive Date: 20231003
  Receipt Date: 20231011
  Transmission Date: 20240109
  Serious: Yes (Hospitalization)
  Sender: FDA-Public Use
  Company Number: None

PATIENT
  Age: 55 Year
  Sex: Male
  Weight: 68 kg

DRUGS (10)
  1. RISPERIDONE [Interacting]
     Active Substance: RISPERIDONE
     Indication: Schizophrenia
     Dosage: 8 MG, QD
     Route: 048
     Dates: start: 20230904
  2. RISPERIDONE [Interacting]
     Active Substance: RISPERIDONE
     Dosage: 4 MG, QD
     Route: 048
     Dates: end: 20230903
  3. ATROPINE SULFATE [Suspect]
     Active Substance: ATROPINE SULFATE
     Indication: Salivary hypersecretion
     Dosage: 1 DROP, PRN
     Route: 060
  4. TERALITHE [Interacting]
     Active Substance: LITHIUM CARBONATE
     Indication: Schizophrenia
     Route: 048
     Dates: start: 20230904
  5. TERALITHE [Interacting]
     Active Substance: LITHIUM CARBONATE
     Route: 048
     Dates: end: 20230830
  6. TERALITHE [Interacting]
     Active Substance: LITHIUM CARBONATE
     Route: 048
     Dates: start: 20230901, end: 20230903
  7. LORMETAZEPAM [Interacting]
     Active Substance: LORMETAZEPAM
     Indication: Sleep disorder
     Dosage: 1 MG, QD
     Route: 048
  8. CLOZAPINE [Interacting]
     Active Substance: CLOZAPINE
     Indication: Schizophrenia
     Dosage: 700 MG, QD
     Route: 048
  9. DEPAKOTE [Interacting]
     Active Substance: DIVALPROEX SODIUM
     Indication: Schizophrenia
     Dosage: 1500 MG, QD
     Route: 048
  10. TROPATEPINE HYDROCHLORIDE [Interacting]
     Active Substance: TROPATEPINE HYDROCHLORIDE
     Indication: Parkinsonism
     Dosage: 10 MG, QD
     Route: 048

REACTIONS (3)
  - Extrapyramidal disorder [Recovering/Resolving]
  - Fall [Recovering/Resolving]
  - Drug interaction [Recovered/Resolved]
